FAERS Safety Report 9372257 (Version 1)
Quarter: 2013Q2

REPORT INFORMATION
  Report Type: Report from Study
  Country: US (occurrence: US)
  Receive Date: 20130627
  Receipt Date: 20130627
  Transmission Date: 20140414
  Serious: Yes (Death)
  Sender: FDA-Public Use
  Company Number: US-MYLANLABS-2012S1018373

PATIENT
  Age: 52 Year
  Sex: Male

DRUGS (9)
  1. CLOZAPINE TABLETS [Suspect]
     Route: 048
     Dates: start: 20111130, end: 20120718
  2. EFFEXOR XR [Concomitant]
     Route: 048
  3. BENZTROPINE [Concomitant]
     Route: 048
  4. CLORAZEPATE [Concomitant]
     Route: 048
  5. TRILIPIX [Concomitant]
     Route: 048
  6. CRESTOR [Concomitant]
     Route: 048
  7. METFORMIN [Concomitant]
  8. LOVAZA [Concomitant]
  9. BISOPROLOL FUMARATE [Concomitant]

REACTIONS (1)
  - Death [Fatal]
